FAERS Safety Report 14343381 (Version 1)
Quarter: 2018Q1

REPORT INFORMATION
  Report Type: Spontaneous
  Country: GB (occurrence: GB)
  Receive Date: 20180101
  Receipt Date: 20180101
  Transmission Date: 20180509
  Serious: Yes (Death, Disabling)
  Sender: FDA-Public Use
  Company Number: None

PATIENT
  Age: 90 Year
  Sex: Female
  Weight: 54 kg

DRUGS (1)
  1. PROLIA [Suspect]
     Active Substance: DENOSUMAB
     Indication: OSTEOPOROSIS
     Dosage: INTRAMUSCULAR; 6 MONTHS?
     Route: 030
     Dates: start: 20170201, end: 20170801

REACTIONS (6)
  - Fall [None]
  - Pain in extremity [None]
  - Unevaluable event [None]
  - Circulatory collapse [None]
  - Confusional state [None]
  - Back pain [None]

NARRATIVE: CASE EVENT DATE: 20170603
